FAERS Safety Report 13576194 (Version 1)
Quarter: 2017Q2

REPORT INFORMATION
  Report Type: Report from Study
  Country: US (occurrence: US)
  Receive Date: 20170524
  Receipt Date: 20170524
  Transmission Date: 20170830
  Serious: Yes (Hospitalization)
  Sender: FDA-Public Use
  Company Number: US-ACTELION-A-US2017-154269

PATIENT
  Age: 10 Year
  Sex: Female
  Weight: 21.32 kg

DRUGS (1)
  1. TRACLEER [Suspect]
     Active Substance: BOSENTAN
     Indication: PULMONARY HYPERTENSION
     Dosage: 31.25 MG, BID
     Route: 048

REACTIONS (2)
  - Tracheal operation [Unknown]
  - Pneumonia [Unknown]

NARRATIVE: CASE EVENT DATE: 20170510
